FAERS Safety Report 15415933 (Version 2)
Quarter: 2018Q4

REPORT INFORMATION
  Report Type: Spontaneous
  Country: US (occurrence: US)
  Receive Date: 20180923
  Receipt Date: 20181029
  Transmission Date: 20190204
  Serious: No
  Sender: FDA-Public Use
  Company Number: US-JNJFOC-20180905098

PATIENT
  Sex: Female
  Weight: 74.84 kg

DRUGS (37)
  1. DURAGESIC [Suspect]
     Active Substance: FENTANYL
     Indication: SPINAL DISORDER
     Route: 062
     Dates: start: 2008
  2. DURAGESIC [Suspect]
     Active Substance: FENTANYL
     Indication: RHEUMATOID ARTHRITIS
     Route: 062
  3. DURAGESIC [Suspect]
     Active Substance: FENTANYL
     Indication: OSTEOARTHRITIS
     Route: 062
  4. DURAGESIC [Suspect]
     Active Substance: FENTANYL
     Indication: OSTEOARTHRITIS
     Route: 062
  5. DURAGESIC [Suspect]
     Active Substance: FENTANYL
     Indication: SPINAL COLUMN STENOSIS
     Route: 062
  6. DURAGESIC [Suspect]
     Active Substance: FENTANYL
     Indication: SPINAL COLUMN STENOSIS
     Route: 062
     Dates: start: 2008
  7. DURAGESIC [Suspect]
     Active Substance: FENTANYL
     Indication: SPINAL COLUMN STENOSIS
     Route: 062
  8. DURAGESIC [Suspect]
     Active Substance: FENTANYL
     Indication: OSTEOARTHRITIS
     Route: 062
  9. DURAGESIC [Suspect]
     Active Substance: FENTANYL
     Indication: SPINAL DISORDER
     Route: 062
  10. DURAGESIC [Suspect]
     Active Substance: FENTANYL
     Indication: ARTHROPATHY
     Route: 062
  11. VITAMIN D [Concomitant]
     Active Substance: CHOLECALCIFEROL
     Route: 065
  12. FENTANYL. [Suspect]
     Active Substance: FENTANYL
     Indication: FIBROMYALGIA
     Route: 062
  13. DURAGESIC [Suspect]
     Active Substance: FENTANYL
     Indication: PROCEDURAL PAIN
     Route: 062
     Dates: start: 2008
  14. DURAGESIC [Suspect]
     Active Substance: FENTANYL
     Indication: SPINAL COLUMN STENOSIS
     Route: 062
  15. DURAGESIC [Suspect]
     Active Substance: FENTANYL
     Indication: FIBROMYALGIA
     Route: 062
  16. DURAGESIC [Suspect]
     Active Substance: FENTANYL
     Indication: SPINAL DISORDER
     Route: 062
  17. FENTANYL. [Suspect]
     Active Substance: FENTANYL
     Indication: SPINAL COLUMN STENOSIS
     Route: 062
  18. DURAGESIC [Suspect]
     Active Substance: FENTANYL
     Indication: OSTEOARTHRITIS
     Route: 062
     Dates: start: 2008
  19. DURAGESIC [Suspect]
     Active Substance: FENTANYL
     Indication: ARTHROPATHY
     Route: 062
  20. DURAGESIC [Suspect]
     Active Substance: FENTANYL
     Indication: FIBROMYALGIA
     Route: 062
  21. DURAGESIC [Suspect]
     Active Substance: FENTANYL
     Indication: PROCEDURAL PAIN
     Route: 062
  22. FENTANYL. [Suspect]
     Active Substance: FENTANYL
     Indication: SPINAL DISORDER
     Route: 062
  23. VITAMIN C [Concomitant]
     Active Substance: ASCORBIC ACID
     Route: 065
  24. DURAGESIC [Suspect]
     Active Substance: FENTANYL
     Indication: RHEUMATOID ARTHRITIS
     Route: 062
     Dates: start: 2008
  25. DURAGESIC [Suspect]
     Active Substance: FENTANYL
     Indication: PROCEDURAL PAIN
     Route: 062
  26. DURAGESIC [Suspect]
     Active Substance: FENTANYL
     Indication: RHEUMATOID ARTHRITIS
     Route: 062
  27. FENTANYL. [Suspect]
     Active Substance: FENTANYL
     Indication: RHEUMATOID ARTHRITIS
     Route: 062
  28. FENTANYL. [Suspect]
     Active Substance: FENTANYL
     Indication: OSTEOARTHRITIS
     Route: 062
  29. FENTANYL. [Suspect]
     Active Substance: FENTANYL
     Indication: ARTHROPATHY
     Route: 062
  30. FENTANYL. [Suspect]
     Active Substance: FENTANYL
     Indication: PROCEDURAL PAIN
     Route: 062
  31. DURAGESIC [Suspect]
     Active Substance: FENTANYL
     Indication: FIBROMYALGIA
     Route: 062
     Dates: start: 2008
  32. DURAGESIC [Suspect]
     Active Substance: FENTANYL
     Indication: ARTHROPATHY
     Route: 062
     Dates: start: 2008
  33. DURAGESIC [Suspect]
     Active Substance: FENTANYL
     Indication: FIBROMYALGIA
     Route: 062
  34. DURAGESIC [Suspect]
     Active Substance: FENTANYL
     Indication: SPINAL DISORDER
     Route: 062
  35. DURAGESIC [Suspect]
     Active Substance: FENTANYL
     Indication: ARTHROPATHY
     Route: 062
  36. DURAGESIC [Suspect]
     Active Substance: FENTANYL
     Indication: PROCEDURAL PAIN
     Route: 062
  37. DURAGESIC [Suspect]
     Active Substance: FENTANYL
     Indication: RHEUMATOID ARTHRITIS
     Route: 062

REACTIONS (3)
  - Inappropriate schedule of product administration [Unknown]
  - Pain [Recovered/Resolved]
  - Drug ineffective [Unknown]
